FAERS Safety Report 25284055 (Version 2)
Quarter: 2025Q3

REPORT INFORMATION
  Report Type: Report from Study
  Country: IL (occurrence: IL)
  Receive Date: 20250508
  Receipt Date: 20250710
  Transmission Date: 20251020
  Serious: Yes (Hospitalization)
  Sender: TEVA
  Company Number: IL-TEVA-VS-3325094

PATIENT
  Age: 24 Year
  Sex: Female

DRUGS (1)
  1. COPAXONE [Suspect]
     Active Substance: GLATIRAMER ACETATE
     Indication: Product used for unknown indication
     Route: 065
     Dates: start: 20241219

REACTIONS (10)
  - Generalised oedema [Unknown]
  - Pruritus [Recovered/Resolved]
  - Rash [Unknown]
  - Erythema [Unknown]
  - Lip swelling [Unknown]
  - Vomiting [Unknown]
  - Diarrhoea [Unknown]
  - Syncope [Unknown]
  - Blood pressure decreased [Unknown]
  - Anaphylactic shock [Unknown]

NARRATIVE: CASE EVENT DATE: 20250101
